FAERS Safety Report 4577451-8 (Version None)
Quarter: 2005Q1

REPORT INFORMATION
  Report Type: 
  Country: None (occurrence: None)
  Receive Date: 20050208
  Receipt Date: 20050126
  Transmission Date: 20050727
  Serious: Yes (Other)
  Sender: FDA-Public Use
  Company Number: 2005020955

PATIENT
  Age: 66 Year
  Sex: Male
  Weight: 55 kg

DRUGS (3)
  1. CABERGOLINE [Suspect]
     Indication: PARKINSON'S DISEASE
     Dosage: 6 MG (2 MG, ) , ORAL
     Route: 048
     Dates: start: 19990101
  2. MADOPAR (BENSERAZIDE HYDROCHLORIDE, LEVODOPA) [Concomitant]
  3. ENTACAPNE (ENTACAPONE0 [Concomitant]

REACTIONS (5)
  - AORTIC VALVE INCOMPETENCE [None]
  - DIZZINESS [None]
  - DYSPNOEA [None]
  - MITRAL VALVE INCOMPETENCE [None]
  - TRICUSPID VALVE INCOMPETENCE [None]
